FAERS Safety Report 5920566-X (Version None)
Quarter: 2008Q4

REPORT INFORMATION
  Report Type: 
  Country: None (occurrence: None)
  Receive Date: 20081015
  Receipt Date: 20081015
  Transmission Date: 20090506
  Serious: Yes (Hospitalization)
  Sender: FDA-Public Use
  Company Number: None

PATIENT
  Age: 65 Year
  Sex: Male
  Weight: 88.09 kg

DRUGS (1)
  1. ENALAPRIL MALEATE [Suspect]
     Indication: HYPERTENSION
     Dosage: 15 MG BID PO
     Route: 048
     Dates: start: 20070129, end: 20070527

REACTIONS (2)
  - ANAPHYLACTIC REACTION [None]
  - ARTHROPOD BITE [None]
